FAERS Safety Report 13100134 (Version 1)
Quarter: 2017Q1

REPORT INFORMATION
  Report Type: Other
  Country: US (occurrence: US)
  Receive Date: 20170110
  Receipt Date: 20170110
  Transmission Date: 20170428
  Serious: Yes (Hospitalization, Other)
  Sender: FDA-Public Use
  Company Number: US-SHIRE-US201618183

PATIENT
  Sex: Female

DRUGS (1)
  1. GATTEX [Suspect]
     Active Substance: TEDUGLUTIDE\WATER
     Indication: SHORT-BOWEL SYNDROME
     Dosage: 0.316 ML, 1X/DAY:QD
     Route: 058
     Dates: start: 20160701

REACTIONS (2)
  - Device related infection [Recovered/Resolved]
  - Injection site discolouration [Unknown]

NARRATIVE: CASE EVENT DATE: 2016
